FAERS Safety Report 7370602-1 (Version None)
Quarter: 2011Q1

REPORT INFORMATION
  Report Type: 
  Country: None (occurrence: None)
  Receive Date: 20110323
  Receipt Date: 20110310
  Transmission Date: 20110831
  Serious: Yes (Hospitalization)
  Sender: FDA-Public Use
  Company Number: US-ACTELION-A-US2011-46120

PATIENT

DRUGS (4)
  1. REVATIO [Concomitant]
  2. METOLAZONE [Concomitant]
  3. FUROSEMIDE [Concomitant]
  4. TRACLEER [Suspect]
     Indication: PULMONARY ARTERIAL HYPERTENSION
     Dosage: UNK
     Route: 048
     Dates: start: 20070403

REACTIONS (4)
  - HAEMOPHILUS INFECTION [None]
  - RESPIRATORY SYNCYTIAL VIRUS INFECTION [None]
  - PNEUMONIA [None]
  - DYSPNOEA [None]
